FAERS Safety Report 15536633 (Version 1)
Quarter: 2018Q4

REPORT INFORMATION
  Report Type: Spontaneous
  Country: US (occurrence: US)
  Receive Date: 20181022
  Receipt Date: 20181022
  Transmission Date: 20190205
  Serious: Yes (Other)
  Sender: FDA-Public Use
  Company Number: None

PATIENT
  Age: 77 Year
  Sex: Female
  Weight: 72.9 kg

DRUGS (7)
  1. CARVEDILOL 3.125 MG [Suspect]
     Active Substance: CARVEDILOL
     Indication: HYPERTENSION
     Dosage: ??          QUANTITY:1 TABLET(S);?
     Route: 048
  2. VITAMIN C [Concomitant]
     Active Substance: ASCORBIC ACID
  3. AREDS [Concomitant]
     Active Substance: MINERALS\VITAMINS
  4. ASPIRIN. [Concomitant]
     Active Substance: ASPIRIN
  5. BONE FORMULA [Concomitant]
  6. FISH OIL [Concomitant]
     Active Substance: FISH OIL
  7. VIT B-50 COMPLEX [Concomitant]

REACTIONS (3)
  - Urinary tract infection [None]
  - Ventricular extrasystoles [None]
  - Blood pressure increased [None]

NARRATIVE: CASE EVENT DATE: 20181019
